FAERS Safety Report 13375922 (Version 4)
Quarter: 2017Q3

REPORT INFORMATION
  Report Type: Report from Study
  Country: US (occurrence: US)
  Receive Date: 20170328
  Receipt Date: 20170828
  Transmission Date: 20171127
  Serious: Yes (Hospitalization, Disabling)
  Sender: FDA-Public Use
  Company Number: US-ACTELION-A-US2015-123934

PATIENT
  Age: 64 Year
  Sex: Female

DRUGS (9)
  1. BUDESONIDE. [Concomitant]
     Active Substance: BUDESONIDE
  2. BUPROPION. [Concomitant]
     Active Substance: BUPROPION
  3. TRACLEER [Suspect]
     Active Substance: BOSENTAN
     Indication: PULMONARY ARTERIAL HYPERTENSION
     Dosage: 125 MG, BID
     Route: 048
     Dates: start: 20120210
  4. TRACLEER [Suspect]
     Active Substance: BOSENTAN
     Dosage: 125 MG, BID
     Route: 048
     Dates: start: 20120210
  5. TORSEMIDE. [Concomitant]
     Active Substance: TORSEMIDE
  6. METOLAZONE. [Concomitant]
     Active Substance: METOLAZONE
  7. BUMETANIDE. [Concomitant]
     Active Substance: BUMETANIDE
     Dosage: 2 MG, QD
     Dates: start: 20170504, end: 20170603
  8. DIGOX [Concomitant]
     Active Substance: DIGOXIN
  9. VANCOMYCIN [Concomitant]
     Active Substance: VANCOMYCIN
     Dosage: 125 MG, Q6HRS
     Route: 048
     Dates: start: 20170511, end: 20170710

REACTIONS (12)
  - Sepsis [Recovered/Resolved]
  - Blood glucose increased [Recovered/Resolved]
  - Toe amputation [Recovered/Resolved]
  - Cardiac failure congestive [Not Recovered/Not Resolved]
  - Arrhythmia [Recovered/Resolved]
  - Infection [Recovered/Resolved]
  - Leg amputation [Not Recovered/Not Resolved]
  - Osteomyelitis [Not Recovered/Not Resolved]
  - Diabetes mellitus [Unknown]
  - Urinary tract infection [Recovered/Resolved]
  - Pneumonia [Not Recovered/Not Resolved]
  - Atrial fibrillation [Unknown]

NARRATIVE: CASE EVENT DATE: 20151201
